FAERS Safety Report 25156079 (Version 1)
Quarter: 2025Q2

REPORT INFORMATION
  Report Type: Spontaneous
  Country: US (occurrence: US)
  Receive Date: 20250403
  Receipt Date: 20250403
  Transmission Date: 20250716
  Serious: Yes (Death, Hospitalization, Other)
  Sender: SANOFI AVENTIS
  Company Number: US-SA-2025SA089670

PATIENT
  Age: 95 Year
  Sex: Female

DRUGS (16)
  1. DUPIXENT [Suspect]
     Active Substance: DUPILUMAB
     Indication: Eczema
     Route: 058
     Dates: start: 20240613, end: 20240613
  2. DUPIXENT [Suspect]
     Active Substance: DUPILUMAB
     Dosage: 300 MG, QOW
     Route: 058
     Dates: start: 20240627, end: 2024
  3. CLOTRIMAZOLE [Concomitant]
     Active Substance: CLOTRIMAZOLE
     Route: 061
  4. FAMOTIDINE [Concomitant]
     Active Substance: FAMOTIDINE
  5. ATORVASTATIN [Concomitant]
     Active Substance: ATORVASTATIN
  6. CLARITIN [Concomitant]
     Active Substance: LORATADINE
  7. CAMPHOR [Concomitant]
     Active Substance: CAMPHOR
     Route: 061
  8. MENTHOL [Concomitant]
     Active Substance: MENTHOL
     Route: 061
  9. LASIX [Concomitant]
     Active Substance: FUROSEMIDE
  10. PETROLATUM [Concomitant]
     Active Substance: PETROLATUM
     Route: 061
  11. LEVOTHYROXINE SODIUM [Concomitant]
     Active Substance: LEVOTHYROXINE SODIUM
  12. APIXABAN [Concomitant]
     Active Substance: APIXABAN
  13. POTASSIUM CHLORIDE [Concomitant]
     Active Substance: POTASSIUM CHLORIDE
  14. CEFUROXIME [Concomitant]
     Active Substance: CEFUROXIME
  15. METOPROLOL SUCCINATE [Concomitant]
     Active Substance: METOPROLOL SUCCINATE
  16. VITAMIN D3 [Concomitant]
     Active Substance: CHOLECALCIFEROL

REACTIONS (3)
  - Death [Fatal]
  - Renal failure [Unknown]
  - Vulvovaginal candidiasis [Unknown]

NARRATIVE: CASE EVENT DATE: 20240901
